FAERS Safety Report 18355837 (Version 1)
Quarter: 2020Q4

REPORT INFORMATION
  Report Type: Spontaneous
  Country: US (occurrence: US)
  Receive Date: 20201007
  Receipt Date: 20201007
  Transmission Date: 20210114
  Serious: No
  Sender: FDA-Public Use
  Company Number: US-LUPIN PHARMACEUTICALS INC.-2020-00383

PATIENT
  Sex: Female
  Weight: 78.01 kg

DRUGS (4)
  1. NAPROXEN. [Suspect]
     Active Substance: NAPROXEN
     Indication: OSTEOARTHRITIS
     Dosage: 500 MILLIGRAM, BID
     Route: 065
  2. DULOXETINE. [Suspect]
     Active Substance: DULOXETINE
     Indication: OSTEOARTHRITIS
     Dosage: 40 MICROGRAM, QD
     Route: 065
  3. OMEPRAZOLE. [Suspect]
     Active Substance: OMEPRAZOLE
     Indication: OSTEOARTHRITIS
     Dosage: 20 MILLIGRAM, BID
     Route: 065
  4. XELJANZ XR [Suspect]
     Active Substance: TOFACITINIB CITRATE
     Indication: PSORIATIC ARTHROPATHY
     Dosage: 11 MILLIGRAM, QD
     Route: 065
     Dates: start: 201908

REACTIONS (2)
  - Adverse drug reaction [Recovered/Resolved]
  - Therapy interrupted [Unknown]
